FAERS Safety Report 4516661-2 (Version None)
Quarter: 2004Q4

REPORT INFORMATION
  Report Type: 
  Country: None (occurrence: None)
  Receive Date: 20041130
  Receipt Date: 20041116
  Transmission Date: 20050328
  Serious: Yes (Death, Other)
  Sender: FDA-Public Use
  Company Number: JP_041105122

PATIENT
  Age: 17 Year
  Sex: Female

DRUGS (6)
  1. ZYPREXA [Suspect]
     Dosage: 50 MG DAY
     Dates: start: 20041110, end: 20041110
  2. PAXIL [Concomitant]
  3. DOGMATYL *SULPIRIDE) [Concomitant]
  4. AMOXAPINE [Concomitant]
  5. FLUVOXAMINE MALEATE [Concomitant]
  6. SILECE (FLUNITRAZEPAM EG) [Concomitant]

REACTIONS (2)
  - COMPLETED SUICIDE [None]
  - MULTIPLE DRUG OVERDOSE INTENTIONAL [None]
